FAERS Safety Report 21493623 (Version 3)
Quarter: 2022Q4

REPORT INFORMATION
  Report Type: Spontaneous
  Country: US (occurrence: US)
  Receive Date: 20221021
  Receipt Date: 20221223
  Transmission Date: 20230113
  Serious: Yes (Hospitalization, Other)
  Sender: FDA-Public Use
  Company Number: US-JNJFOC-20221040350

PATIENT
  Age: 40 Year
  Sex: Female
  Weight: 56 kg

DRUGS (36)
  1. DOXORUBICIN HYDROCHLORIDE [Suspect]
     Active Substance: DOXORUBICIN HYDROCHLORIDE
     Indication: Plasma cell myeloma
     Dosage: (VD-PACE); DOSAGE FORM- INJECTION
     Route: 065
     Dates: start: 202204
  2. DOXORUBICIN HYDROCHLORIDE [Suspect]
     Active Substance: DOXORUBICIN HYDROCHLORIDE
     Dosage: BRIDGING THERAPY (VD-PACE); DOSAGE FORM- INJECTION
     Route: 065
     Dates: start: 202205
  3. DOXORUBICIN HYDROCHLORIDE [Suspect]
     Active Substance: DOXORUBICIN HYDROCHLORIDE
     Dosage: (MODIFIED HYPER); DOSAGE FORM- INJECTION
     Route: 065
     Dates: start: 202206
  4. DARATUMUMAB [Suspect]
     Active Substance: DARATUMUMAB
     Indication: Plasma cell myeloma
     Route: 065
     Dates: start: 202112
  5. DARATUMUMAB [Suspect]
     Active Substance: DARATUMUMAB
     Route: 065
     Dates: start: 2022
  6. BORTEZOMIB [Suspect]
     Active Substance: BORTEZOMIB
     Indication: Plasma cell myeloma
     Route: 065
     Dates: start: 201606
  7. BORTEZOMIB [Suspect]
     Active Substance: BORTEZOMIB
     Dosage: (VD-PACE)
     Route: 065
     Dates: start: 202204
  8. BORTEZOMIB [Suspect]
     Active Substance: BORTEZOMIB
     Dosage: BRIDGING THERAPY (VD-PACE)
     Route: 065
     Dates: start: 202205
  9. BORTEZOMIB [Suspect]
     Active Substance: BORTEZOMIB
     Dosage: (CONSOLIDATED THERAPY)
     Route: 065
  10. CYCLOPHOSPHAMIDE [Suspect]
     Active Substance: CYCLOPHOSPHAMIDE
     Indication: Plasma cell myeloma
     Dosage: VD-PACE
     Route: 065
     Dates: start: 202204
  11. CYCLOPHOSPHAMIDE [Suspect]
     Active Substance: CYCLOPHOSPHAMIDE
     Dosage: BRIDGING THERAPY (VD-PACE)
     Route: 065
     Dates: start: 202205
  12. CYCLOPHOSPHAMIDE [Suspect]
     Active Substance: CYCLOPHOSPHAMIDE
     Dosage: (MODIFIED HYPER)
     Route: 065
     Dates: start: 202206
  13. DEXAMETHASONE [Suspect]
     Active Substance: DEXAMETHASONE
     Indication: Plasma cell myeloma
     Route: 065
     Dates: start: 201606
  14. DEXAMETHASONE [Suspect]
     Active Substance: DEXAMETHASONE
     Route: 065
     Dates: start: 202112
  15. DEXAMETHASONE [Suspect]
     Active Substance: DEXAMETHASONE
     Route: 065
     Dates: start: 2022
  16. DEXAMETHASONE [Suspect]
     Active Substance: DEXAMETHASONE
     Dosage: VD-PACE
     Route: 065
     Dates: start: 202204
  17. DEXAMETHASONE [Suspect]
     Active Substance: DEXAMETHASONE
     Dosage: BRID GING THERAPY, VD-PACE
     Route: 065
     Dates: start: 202205
  18. DEXAMETHASONE [Suspect]
     Active Substance: DEXAMETHASONE
     Dosage: (MODIFIED HYPER)
     Route: 065
     Dates: start: 202206
  19. DEXAMETHASONE [Suspect]
     Active Substance: DEXAMETHASONE
     Dosage: (CONSOLIDATED THERAPY);
     Route: 065
  20. REVLIMID [Suspect]
     Active Substance: LENALIDOMIDE
     Indication: Plasma cell myeloma
     Route: 065
     Dates: start: 201606
  21. REVLIMID [Suspect]
     Active Substance: LENALIDOMIDE
     Route: 065
     Dates: start: 202112
  22. REVLIMID [Suspect]
     Active Substance: LENALIDOMIDE
     Dosage: (MAINTENANCE THERAPY-ACHIEVED COMPLETE RESPONSE
     Route: 065
  23. CISPLATIN [Suspect]
     Active Substance: CISPLATIN
     Indication: Plasma cell myeloma
     Dosage: VD-PACE
     Route: 065
     Dates: start: 202204
  24. CISPLATIN [Suspect]
     Active Substance: CISPLATIN
     Dosage: BRIDGING THERAPY ; VD-PACE
     Route: 065
     Dates: start: 202205
  25. ETOPOSIDE [Suspect]
     Active Substance: ETOPOSIDE
     Indication: Plasma cell myeloma
     Dosage: (VD PACE)
     Route: 065
     Dates: start: 202204
  26. ETOPOSIDE [Suspect]
     Active Substance: ETOPOSIDE
     Dosage: BRIDGING THERAPY (VD PACE)
     Route: 065
     Dates: start: 202205
  27. MELPHALAN [Suspect]
     Active Substance: MELPHALAN
     Indication: Plasma cell myeloma
     Route: 065
     Dates: start: 20170111
  28. CARFILZOMIB [Suspect]
     Active Substance: CARFILZOMIB
     Indication: Plasma cell myeloma
     Route: 065
     Dates: start: 2022
  29. VINCRISTINE SULFATE [Suspect]
     Active Substance: VINCRISTINE SULFATE
     Indication: Plasma cell myeloma
     Dosage: (MODIFIED HYPER)
     Route: 065
     Dates: start: 202206
  30. GENETICALLY-MODIFIED AUTOLOGOUS T CELLS NOS [Suspect]
     Active Substance: GENETICALLY-MODIFIED AUTOLOGOUS T CELLS NOS
     Indication: Plasma cell myeloma
     Dosage: (BRIDGING THERAPY)
     Route: 065
     Dates: start: 202205
  31. LETERMOVIR [Concomitant]
     Active Substance: LETERMOVIR
  32. OMEPRAZOLE [Concomitant]
     Active Substance: OMEPRAZOLE
  33. METHYLPREDNISOLONE [Concomitant]
     Active Substance: METHYLPREDNISOLONE
  34. CARAFATE [Concomitant]
     Active Substance: SUCRALFATE
  35. ZOFRAN [Concomitant]
     Active Substance: ONDANSETRON HYDROCHLORIDE
  36. NAPROXEN [Concomitant]
     Active Substance: NAPROXEN

REACTIONS (3)
  - Adverse event [Unknown]
  - Plasma cell myeloma [Unknown]
  - Cytomegalovirus viraemia [Recovering/Resolving]

NARRATIVE: CASE EVENT DATE: 20220401
